FAERS Safety Report 20718870 (Version 1)
Quarter: 2022Q2

REPORT INFORMATION
  Report Type: Other
  Country: JP (occurrence: None)
  Receive Date: 20220418
  Receipt Date: 20220418
  Transmission Date: 20220721
  Serious: Yes (Other)
  Sender: FDA-Public Use
  Company Number: JP-ROCHE-3074182

PATIENT
  Age: 85 Year
  Sex: Male

DRUGS (4)
  1. ATEZOLIZUMAB [Suspect]
     Active Substance: ATEZOLIZUMAB
     Indication: Lung adenocarcinoma
     Route: 065
  2. ATEZOLIZUMAB [Suspect]
     Active Substance: ATEZOLIZUMAB
     Indication: Malignant pleural effusion
  3. CARBOPLATIN [Concomitant]
     Active Substance: CARBOPLATIN
  4. PEMETREXED [Concomitant]
     Active Substance: PEMETREXED

REACTIONS (1)
  - Fulminant type 1 diabetes mellitus [Unknown]
